FAERS Safety Report 24568104 (Version 1)
Quarter: 2024Q4

REPORT INFORMATION
  Report Type: Spontaneous
  Country: JP (occurrence: JP)
  Receive Date: 20241031
  Receipt Date: 20241031
  Transmission Date: 20250115
  Serious: Yes (Other)
  Sender: ASTELLAS
  Company Number: JP-ASTELLAS-2024-AER-014340

PATIENT
  Age: 57 Year
  Sex: Male

DRUGS (1)
  1. TACROLIMUS [Suspect]
     Active Substance: TACROLIMUS
     Indication: Product used for unknown indication
     Route: 065

REACTIONS (3)
  - Obstructive pancreatitis [Recovering/Resolving]
  - Pancreatitis haemorrhagic [Unknown]
  - Pancreatic carcinoma [Recovering/Resolving]
